FAERS Safety Report 5339817-8 (Version None)
Quarter: 2007Q2

REPORT INFORMATION
  Report Type: 
  Country: None (occurrence: None)
  Receive Date: 20070524
  Receipt Date: 20070516
  Transmission Date: 20071010
  Serious: Yes (Other)
  Sender: FDA-Public Use
  Company Number: WAES 0701USA00261

PATIENT
  Age: 63 Year
  Sex: Male

DRUGS (2)
  1. PROPECIA [Suspect]
     Indication: MALE PATTERN BALDNESS
     Dosage: 1 MG/DAILY/PO
     Route: 048
     Dates: start: 19980830, end: 20000830
  2. BEXTRA [Concomitant]

REACTIONS (5)
  - ARTERIAL OCCLUSIVE DISEASE [None]
  - INCONTINENCE [None]
  - POST PROCEDURAL COMPLICATION [None]
  - PROSTATE CANCER [None]
  - PROSTATIC SPECIFIC ANTIGEN INCREASED [None]
